FAERS Safety Report 6755242-7 (Version None)
Quarter: 2010Q2

REPORT INFORMATION
  Report Type: 
  Country: None (occurrence: None)
  Receive Date: 20100604
  Receipt Date: 20100527
  Transmission Date: 20101027
  Serious: No
  Sender: FDA-Public Use
  Company Number: US-BIOGENIDEC-2010BI018074

PATIENT
  Sex: Female

DRUGS (2)
  1. TYSABRI [Suspect]
     Indication: MULTIPLE SCLEROSIS
     Route: 042
     Dates: start: 20070108, end: 20090910
  2. TYSABRI [Suspect]
     Route: 042
     Dates: start: 20100501

REACTIONS (4)
  - DEPRESSED MOOD [None]
  - MULTIPLE SCLEROSIS [None]
  - SPEECH DISORDER [None]
  - TACITURNITY [None]
